FAERS Safety Report 7280851-9 (Version None)
Quarter: 2011Q1

REPORT INFORMATION
  Report Type: 
  Country: None (occurrence: None)
  Receive Date: 20110208
  Receipt Date: 20110203
  Transmission Date: 20110831
  Serious: Yes (Death, Other)
  Sender: FDA-Public Use
  Company Number: US-PFIZER INC-2010047034

PATIENT
  Sex: Male

DRUGS (1)
  1. CHANTIX [Suspect]
     Indication: SMOKING CESSATION THERAPY
     Dosage: STARTER PACK
     Dates: start: 20061130, end: 20080408

REACTIONS (8)
  - MOOD SWINGS [None]
  - INSOMNIA [None]
  - ANXIETY [None]
  - AMNESIA [None]
  - COMPLETED SUICIDE [None]
  - DEPRESSION [None]
  - HALLUCINATION [None]
  - ABNORMAL DREAMS [None]
